FAERS Safety Report 8954523 (Version 1)
Quarter: 2012Q4

REPORT INFORMATION
  Report Type: Spontaneous
  Country: US (occurrence: None)
  Receive Date: 20121205
  Receipt Date: 20121205
  Transmission Date: 20130627
  Serious: No
  Sender: FDA-Public Use
  Company Number: None

PATIENT
  Age: 80 Year
  Sex: Female
  Weight: 61.24 kg

DRUGS (1)
  1. HYDROCHLOROTHIAZIDE [Suspect]
     Indication: SWELLING OF FEET
     Dosage: 12.5 M 1 Daily
     Dates: start: 20120925, end: 20121012

REACTIONS (2)
  - Rash [None]
  - Muscle spasms [None]
